FAERS Safety Report 8469271-9 (Version None)
Quarter: 2012Q2

REPORT INFORMATION
  Report Type: 
  Country: None (occurrence: None)
  Receive Date: 20120626
  Receipt Date: 20120620
  Transmission Date: 20120825
  Serious: Yes (Death)
  Sender: FDA-Public Use
  Company Number: NL-B.I. PHARMACEUTICALS,INC./RIDGEFIELD-2012-NL-00241NL

PATIENT

DRUGS (1)
  1. SINTROM [Suspect]

REACTIONS (2)
  - FALL [None]
  - SUBDURAL HAEMATOMA [None]
